FAERS Safety Report 18494505 (Version 1)
Quarter: 2020Q4

REPORT INFORMATION
  Report Type: Spontaneous
  Country: US (occurrence: US)
  Receive Date: 20201112
  Receipt Date: 20201112
  Transmission Date: 20210114
  Serious: Yes (Life-Threatening, Hospitalization, Other)
  Sender: FDA-Public Use
  Company Number: US-LUPIN PHARMACEUTICALS INC.-2020-08620

PATIENT
  Age: 54 Year
  Sex: Male

DRUGS (17)
  1. CALCIUM [Suspect]
     Active Substance: CALCIUM
     Indication: EVIDENCE BASED TREATMENT
     Dosage: UNK
     Route: 042
  2. INSULIN [Suspect]
     Active Substance: INSULIN NOS
     Indication: EVIDENCE BASED TREATMENT
     Dosage: UNK
     Route: 042
  3. EPINEPHRINE. [Concomitant]
     Active Substance: EPINEPHRINE
     Indication: CARDIAC ARREST
     Dosage: UNK
     Route: 065
  4. VASOPRESSIN. [Concomitant]
     Active Substance: VASOPRESSIN
     Indication: CARDIAC ARREST
  5. NALOXONE [Concomitant]
     Active Substance: NALOXONE
     Indication: CARDIAC ARREST
  6. ASPIRIN [ACETYLSALICYLIC ACID] [Concomitant]
     Active Substance: ASPIRIN
     Indication: PRODUCT USED FOR UNKNOWN INDICATION
     Dosage: UNK
     Route: 054
  7. NOREPINEPHRINE. [Concomitant]
     Active Substance: NOREPINEPHRINE
     Indication: VENTRICULAR FIBRILLATION
     Dosage: UNK
     Route: 065
  8. KETAMINE [Concomitant]
     Active Substance: KETAMINE
     Indication: ENDOTRACHEAL INTUBATION
     Dosage: UNK
     Route: 042
  9. NALOXONE [Concomitant]
     Active Substance: NALOXONE
     Indication: VENTRICULAR FIBRILLATION
     Dosage: UNK
     Route: 042
  10. SODIUM BICARBONATE. [Concomitant]
     Active Substance: SODIUM BICARBONATE
     Indication: EVIDENCE BASED TREATMENT
     Dosage: UNK
     Route: 042
  11. DEXTROSE. [Suspect]
     Active Substance: DEXTROSE
     Indication: EVIDENCE BASED TREATMENT
     Dosage: UNK
     Route: 042
  12. EPINEPHRINE. [Concomitant]
     Active Substance: EPINEPHRINE
     Indication: VENTRICULAR FIBRILLATION
     Dosage: UNK
     Route: 065
  13. AMIODARONE [Concomitant]
     Active Substance: AMIODARONE
     Indication: CARDIAC ARREST
  14. VASOPRESSIN. [Concomitant]
     Active Substance: VASOPRESSIN
     Indication: VENTRICULAR FIBRILLATION
     Dosage: UNK
     Route: 065
  15. NOREPINEPHRINE. [Concomitant]
     Active Substance: NOREPINEPHRINE
     Indication: CARDIAC ARREST
  16. ROCURONIUM [Concomitant]
     Active Substance: ROCURONIUM BROMIDE
     Indication: ENDOTRACHEAL INTUBATION
     Dosage: UNK
     Route: 042
  17. AMIODARONE [Concomitant]
     Active Substance: AMIODARONE
     Indication: VENTRICULAR FIBRILLATION
     Dosage: UNK
     Route: 042

REACTIONS (5)
  - Anuria [Unknown]
  - Hypokalaemia [Unknown]
  - Hypercalcaemia [Recovered/Resolved]
  - Condition aggravated [Unknown]
  - Rhabdomyolysis [Unknown]
